FAERS Safety Report 18585676 (Version 1)
Quarter: 2020Q4

REPORT INFORMATION
  Report Type: Spontaneous
  Country: US (occurrence: US)
  Receive Date: 20201207
  Receipt Date: 20201207
  Transmission Date: 20210114
  Serious: No
  Sender: FDA-Public Use
  Company Number: US-PFIZER INC-2020408105

PATIENT
  Age: 65 Year
  Sex: Female

DRUGS (3)
  1. IBRANCE [Suspect]
     Active Substance: PALBOCICLIB
     Dosage: 125 MG, CYCLIC (DAILY FOR 21 DAYS THEN 7 DAYS OFF)
     Route: 048
     Dates: start: 20200928
  2. FASLODEX [Concomitant]
     Active Substance: FULVESTRANT
     Dosage: UNK (250 MG/5ML SYRINGE)
  3. IBRANCE [Suspect]
     Active Substance: PALBOCICLIB
     Indication: BREAST CANCER FEMALE
     Dosage: 125 MG, CYCLIC (1 DAILY FOR 21 DAYS/DAILY FOR 21 DAYS, THEN 7 DAYS OFF)
     Route: 048
     Dates: start: 20190518, end: 20200923

REACTIONS (2)
  - Dry eye [Not Recovered/Not Resolved]
  - White blood cell count decreased [Recovered/Resolved]
